FAERS Safety Report 8623781 (Version 7)
Quarter: 2013Q4

REPORT INFORMATION
  Report Type: Report from Study
  Country: CA (occurrence: CA)
  Receive Date: 20120620
  Receipt Date: 20131218
  Transmission Date: 20140711
  Serious: Yes (Life-Threatening, Hospitalization)
  Sender: FDA-Public Use
  Company Number: PHHY2012CA052387

PATIENT
  Age: 77 Year
  Sex: Female

DRUGS (6)
  1. TASIGNA [Suspect]
     Indication: CHRONIC MYELOID LEUKAEMIA
     Dosage: 400 MG, BID
     Route: 048
     Dates: start: 20100713, end: 20131004
  2. TASIGNA [Suspect]
     Dosage: 200 MG, QD
     Route: 048
  3. METOPROLOL [Concomitant]
  4. PLAVIX [Concomitant]
  5. ASA [Concomitant]
  6. SIMVASTATIN [Concomitant]

REACTIONS (6)
  - Cerebrovascular accident [Recovering/Resolving]
  - Fatigue [Unknown]
  - Aphasia [Recovered/Resolved with Sequelae]
  - Dysarthria [Unknown]
  - Chest discomfort [Unknown]
  - Oral mucosal blistering [Recovered/Resolved with Sequelae]
